FAERS Safety Report 19403431 (Version 1)
Quarter: 2021Q2

REPORT INFORMATION
  Report Type: Spontaneous
  Country: US (occurrence: US)
  Receive Date: 20210610
  Receipt Date: 20210610
  Transmission Date: 20210717
  Serious: No
  Sender: FDA-Public Use
  Company Number: None

PATIENT
  Age: 64 Year
  Sex: Male
  Weight: 105.3 kg

DRUGS (2)
  1. DEFINITY [Suspect]
     Active Substance: PERFLUTREN
     Indication: STRESS ECHOCARDIOGRAM
     Dosage: ?          OTHER FREQUENCY:ONCE;?
     Route: 040
     Dates: start: 20210610, end: 20210610
  2. DEFINITY [Concomitant]
     Active Substance: PERFLUTREN
     Dates: start: 20210610, end: 20210610

REACTIONS (3)
  - Neck pain [None]
  - Pain [None]
  - Back pain [None]

NARRATIVE: CASE EVENT DATE: 20210610
